FAERS Safety Report 9872209 (Version 2)
Quarter: 2014Q1

REPORT INFORMATION
  Report Type: Spontaneous
  Country: US (occurrence: US)
  Receive Date: 20140205
  Receipt Date: 20140205
  Transmission Date: 20141002
  Serious: No
  Sender: FDA-Public Use
  Company Number: US-ALLERGAN-1306242US

PATIENT
  Sex: Female

DRUGS (3)
  1. BOTOX [Suspect]
     Indication: CEREBROVASCULAR ACCIDENT
     Dosage: UNK UNK, SINGLE
     Route: 030
  2. BOTOX [Suspect]
     Dosage: UNK, SINGLE
     Route: 030
  3. BOTOX [Suspect]
     Dosage: UNK, SINGLE
     Route: 030

REACTIONS (2)
  - Overdose [Unknown]
  - Drug ineffective [Unknown]
